FAERS Safety Report 4388880-X (Version None)
Quarter: 2004Q2

REPORT INFORMATION
  Report Type: 
  Country: None (occurrence: None)
  Receive Date: 20040624
  Receipt Date: 20040621
  Transmission Date: 20050107
  Serious: Yes (Hospitalization)
  Sender: FDA-Public Use
  Company Number: LTI2004A00139

PATIENT
  Age: 83 Year
  Sex: Female

DRUGS (7)
  1. OGAST 30 MG (LANSOPRAZOLE) (30 MILLIGRAM, CAPSULES) [Suspect]
     Dosage: 30 MG (30 MG, 1 IN 1 D)
     Route: 048
     Dates: end: 20040216
  2. LODALES (SIMVASTATIN) (1 DOSAGE FORMS, TABLETS) [Suspect]
     Indication: HYPERCHOLESTEROLAEMIA
     Dosage: 1 DF (1 IN 1 D)
     Route: 048
     Dates: end: 20040216
  3. OLMIFON (ADRAFINIL) (300 MILLIGRAM, TABLETS) [Suspect]
     Indication: FATIGUE
     Dosage: 900 MG (300 MG, 3 IN 1 D)
     Route: 048
     Dates: end: 20040216
  4. OLMIFON (ADRAFINIL) (300 MILLIGRAM, TABLETS) [Suspect]
     Indication: MALAISE
     Dosage: 900 MG (300 MG, 3 IN 1 D)
     Route: 048
     Dates: end: 20040216
  5. PLAVIX [Concomitant]
  6. ACETAMINOPHEN [Concomitant]
  7. ADANCOR (NICORANDIL) [Concomitant]

REACTIONS (5)
  - AGITATION [None]
  - CONFUSIONAL STATE [None]
  - DISORIENTATION [None]
  - FALL [None]
  - HALLUCINATION, VISUAL [None]
